FAERS Safety Report 21088723 (Version 1)
Quarter: 2022Q3

REPORT INFORMATION
  Report Type: Spontaneous
  Country: US (occurrence: None)
  Receive Date: 20220715
  Receipt Date: 20220715
  Transmission Date: 20221027
  Serious: Yes (Death)
  Sender: FDA-Public Use
  Company Number: None

PATIENT
  Age: 65 Year
  Sex: Female

DRUGS (1)
  1. POMALYST [Suspect]
     Active Substance: POMALIDOMIDE
     Indication: Plasma cell myeloma
     Dosage: FREQUENCY : DAILY;?
     Route: 048
     Dates: start: 20190418, end: 20220708

REACTIONS (4)
  - Cerebral haemorrhage [None]
  - Respiratory failure [None]
  - COVID-19 [None]
  - Unresponsive to stimuli [None]

NARRATIVE: CASE EVENT DATE: 20220708
